FAERS Safety Report 8285864-6 (Version None)
Quarter: 2012Q2

REPORT INFORMATION
  Report Type: 
  Country: None (occurrence: None)
  Receive Date: 20120413
  Receipt Date: 20120406
  Transmission Date: 20120825
  Serious: Yes (Hospitalization)
  Sender: FDA-Public Use
  Company Number: US-ELI_LILLY_AND_COMPANY-US201203007408

PATIENT
  Sex: Female

DRUGS (1)
  1. FORTEO [Suspect]
     Indication: OSTEOPOROSIS
     Dosage: 20 UG, QD
     Route: 065
     Dates: start: 20111201

REACTIONS (6)
  - DIABETES MELLITUS INADEQUATE CONTROL [None]
  - INTERVERTEBRAL DISC INJURY [None]
  - NERVOUS SYSTEM DISORDER [None]
  - FATIGUE [None]
  - MALAISE [None]
  - MOVEMENT DISORDER [None]
